FAERS Safety Report 26069174 (Version 2)
Quarter: 2025Q4

REPORT INFORMATION
  Report Type: Spontaneous
  Country: EU (occurrence: EU)
  Receive Date: 20251120
  Receipt Date: 20251125
  Transmission Date: 20260117
  Serious: Yes (Hospitalization)
  Sender: AUROBINDO
  Company Number: EU-ASTRAZENECA-202510GLO028865DE

PATIENT
  Age: 34 Year
  Sex: Female

DRUGS (22)
  1. CARBOPLATIN [Suspect]
     Active Substance: CARBOPLATIN
     Indication: Non-small cell lung cancer
     Dosage: AREA UNDER THE CURVE (AUC) 1.5 MG/ML/MIN, WEEKLY
     Dates: start: 20250605, end: 20250821
  2. PACLITAXEL [Suspect]
     Active Substance: PACLITAXEL
     Indication: Non-small cell lung cancer
     Dosage: 80 MG/M2, ONCE EVERY 1 WK
     Dates: start: 20250605, end: 20250821
  3. PEMBROLIZUMAB [Suspect]
     Active Substance: PEMBROLIZUMAB
     Indication: Product used for unknown indication
     Dosage: 200 MG, ONCE EVERY 3 WK
  4. EPIRUBICIN [Suspect]
     Active Substance: EPIRUBICIN
     Indication: Non-small cell lung cancer
     Dosage: 90 MG/M2, ONCE EVERY 3 WK
     Dates: start: 20250925, end: 20250925
  5. EPIRUBICIN [Suspect]
     Active Substance: EPIRUBICIN
     Dosage: 90 MG/M2, ONCE EVERY 3 WK
     Dates: start: 20250828, end: 20250828
  6. EPIRUBICIN [Suspect]
     Active Substance: EPIRUBICIN
     Dosage: 90 MG/M2, ONCE EVERY 3 WK
  7. DATOPOTAMAB DERUXTECAN [Suspect]
     Active Substance: DATOPOTAMAB DERUXTECAN
     Indication: Triple negative breast cancer
     Dosage: UNK
  8. CYCLOPHOSPHAMIDE [Suspect]
     Active Substance: CYCLOPHOSPHAMIDE
     Indication: Product used for unknown indication
     Dosage: 600 MILLIGRAM/SQ. METER., ONCE EVERY 3 WK
     Dates: start: 20250828, end: 20250828
  9. CYCLOPHOSPHAMIDE [Suspect]
     Active Substance: CYCLOPHOSPHAMIDE
     Dosage: 600 MILLIGRAM/SQ. METER, ONCE EVERY 3 WK
     Dates: start: 20251016, end: 20251016
  10. CYCLOPHOSPHAMIDE [Suspect]
     Active Substance: CYCLOPHOSPHAMIDE
     Dosage: 600 MILLIGRAM/SQ. METER, ONCE EVERY 3 WK
  11. DIMETHINDENE [Concomitant]
     Active Substance: DIMETHINDENE
     Indication: Premedication
     Dosage: 4 MILLIGRAM, AS NECESSARY
     Dates: start: 20250605, end: 20250822
  12. PANTOPRAZOLE SODIUM [Concomitant]
     Active Substance: PANTOPRAZOLE SODIUM
     Indication: Prophylaxis
     Dosage: 40 MILLIGRAM, AS NECESSARY
     Dates: start: 20250925
  13. SINUPRET [GENTIANA LUTEA ROOT;PRIMULA SPP. FLOWER;RUMEX SPP. HERB;SAMB [Concomitant]
     Indication: Product used for unknown indication
     Dosage: 3 DOSAGE FORM, AS NECESSARY
     Dates: start: 20250603, end: 20250619
  14. CEFUROXIM [CEFUROXIME AXETIL] [Concomitant]
     Indication: Cough
     Dosage: 1000 MILLIGRAM, ONCE A DAY
     Dates: start: 20251021
  15. CEFUROXIM [CEFUROXIME AXETIL] [Concomitant]
     Indication: Nasopharyngitis
     Dosage: 1000 MILLIGRAM, ONCE A DAY
     Dates: start: 20250910, end: 20250917
  16. GRANISETRON HYDROCHLORIDE [Concomitant]
     Active Substance: GRANISETRON HYDROCHLORIDE
     Indication: Premedication
     Dosage: 2 MILLIGRAM, AS NECESSARY
     Dates: start: 20250605, end: 20250822
  17. AKYNZEO (NETUPITANT\PALONOSETRON HYDROCHLORIDE) [Concomitant]
     Active Substance: NETUPITANT\PALONOSETRON HYDROCHLORIDE
     Indication: Premedication
     Dosage: 300 MILLIGRAM, AS NECESSARY
     Dates: start: 20250828
  18. CHOLECALCIFEROL [Concomitant]
     Active Substance: CHOLECALCIFEROL
     Indication: Prophylaxis
     Dosage: DROPS, DAILY
  19. CETIRIZINE HYDROCHLORIDE [Concomitant]
     Active Substance: CETIRIZINE HYDROCHLORIDE
     Indication: Rash
     Dosage: 10 MILLIGRAM, ONCE A DAY
     Dates: start: 20250603
  20. DEXAMETHASONE SODIUM SUCCINATE [Concomitant]
     Active Substance: DEXAMETHASONE SODIUM SUCCINATE
     Indication: Premedication
     Dosage: 8 MILLIGRAM, AS NECESSARY
     Dates: start: 20250605, end: 20250822
  21. DEXAMETHASONE SODIUM SUCCINATE [Concomitant]
     Active Substance: DEXAMETHASONE SODIUM SUCCINATE
     Dosage: 12 MILLIGRAM, AS NECESSARY
     Dates: start: 20250828
  22. PIPERACILLIN [Concomitant]
     Active Substance: PIPERACILLIN
     Indication: Product used for unknown indication
     Dosage: 13.5 GRAM, ONCE A DAY (4.5 GRAM, TID)
     Dates: start: 20251028, end: 20251101

REACTIONS (1)
  - Pyrexia [Recovered/Resolved]

NARRATIVE: CASE EVENT DATE: 20251028
